FAERS Safety Report 23925463 (Version 1)
Quarter: 2024Q2

REPORT INFORMATION
  Report Type: Spontaneous
  Country: MX (occurrence: None)
  Receive Date: 20240531
  Receipt Date: 20240531
  Transmission Date: 20240715
  Serious: Yes (Disabling)
  Sender: FDA-Public Use
  Company Number: MX-ROCHE-3572931

PATIENT
  Age: 73 Year
  Sex: Female
  Weight: 80 kg

DRUGS (6)
  1. RITUXIMAB [Suspect]
     Active Substance: RITUXIMAB
     Indication: Sjogren^s syndrome
     Route: 042
     Dates: start: 202310
  2. PREDNISONE [Concomitant]
     Active Substance: PREDNISONE
     Dosage: DOSE AND FREQUENCY WERE NOT REPORTED
  3. PREGABALIN [Concomitant]
     Active Substance: PREGABALIN
     Dosage: DOSE AND FREQUENCY WERE NOT REPORTED
  4. MICAFUNGIN [Concomitant]
     Active Substance: MICAFUNGIN SODIUM
  5. CALCITONIN [Concomitant]
     Active Substance: CALCITONIN
     Dosage: DOSE AND FREQUENCY WERE NOT REPORTED
  6. METHYLPREDNISOLONE [Concomitant]
     Active Substance: METHYLPREDNISOLONE
     Dosage: FREQUENCY WAS NOT REPORTED

REACTIONS (19)
  - Off label use [Unknown]
  - Lung disorder [Unknown]
  - Liver disorder [Unknown]
  - Nervous system disorder [Unknown]
  - Pain [Recovering/Resolving]
  - Neuropathy peripheral [Recovering/Resolving]
  - Eye disorder [Unknown]
  - Prothrombin time prolonged [Unknown]
  - International normalised ratio increased [Unknown]
  - Red cell distribution width increased [Unknown]
  - Blood creatinine increased [Unknown]
  - Very low density lipoprotein increased [Unknown]
  - Transferrin saturation decreased [Unknown]
  - Specific gravity urine decreased [Unknown]
  - Blood urine present [Unknown]
  - Crystal urine present [Unknown]
  - Blood thyroid stimulating hormone increased [Unknown]
  - Tri-iodothyronine decreased [Unknown]
  - Hypoacusis [Unknown]

NARRATIVE: CASE EVENT DATE: 20231001
